FAERS Safety Report 7586051-7 (Version None)
Quarter: 2011Q2

REPORT INFORMATION
  Report Type: 
  Country: None (occurrence: None)
  Receive Date: 20110629
  Receipt Date: 20110629
  Transmission Date: 20111010
  Serious: Yes (Other)
  Sender: FDA-Public Use
  Company Number: None

PATIENT
  Sex: Female
  Weight: 78.9259 kg

DRUGS (1)
  1. OCTREOTIDE ACETATE [Suspect]
     Dosage: 100 MCG SQ
     Route: 058

REACTIONS (3)
  - CHEST DISCOMFORT [None]
  - IDIOSYNCRATIC DRUG REACTION [None]
  - SINUS BRADYCARDIA [None]
